FAERS Safety Report 8117091-7 (Version None)
Quarter: 2012Q1

REPORT INFORMATION
  Report Type: 
  Country: None (occurrence: None)
  Receive Date: 20120206
  Receipt Date: 20120126
  Transmission Date: 20120608
  Serious: Yes (Hospitalization)
  Sender: FDA-Public Use
  Company Number: US-BAUSCH-2011BL007163

PATIENT
  Age: 52 Year
  Sex: Female

DRUGS (14)
  1. MULTI-VITAMINS [Concomitant]
  2. CALCIUM [Concomitant]
  3. VITAMIN B COMPLEX CAP [Concomitant]
  4. ASCORBIC ACID [Concomitant]
  5. ALAWAY [Suspect]
     Route: 047
     Dates: end: 20111001
  6. DIPHENHYDRAMINE HCL [Concomitant]
     Indication: URTICARIA
     Route: 048
     Dates: start: 20110401
  7. LOVAZA [Concomitant]
  8. SINGULAIR [Concomitant]
     Indication: URTICARIA
     Route: 048
     Dates: start: 20090101
  9. FLUTICASONE PROPIONATE [Concomitant]
     Indication: PERENNIAL ALLERGY
     Route: 045
     Dates: start: 20090101
  10. COENZYME Q10 [Concomitant]
  11. ZOLOFT [Concomitant]
     Indication: ANXIETY
     Route: 048
     Dates: start: 20100901
  12. LORATADINE [Concomitant]
     Indication: URTICARIA
     Route: 048
     Dates: start: 20090101
  13. ALAWAY [Suspect]
     Indication: EYE PRURITUS
     Route: 047
     Dates: start: 20111017, end: 20111017
  14. VITAMIN D [Concomitant]

REACTIONS (1)
  - MYDRIASIS [None]
